FAERS Safety Report 7180205-X (Version None)
Quarter: 2010Q4

REPORT INFORMATION
  Report Type: 
  Country: None (occurrence: None)
  Receive Date: 20101221
  Receipt Date: 20101214
  Transmission Date: 20110411
  Serious: Yes (Hospitalization)
  Sender: FDA-Public Use
  Company Number: US-US-EMD SERONO, INC.-7000009

PATIENT
  Sex: Male
  Weight: 84 kg

DRUGS (8)
  1. REBIF [Suspect]
     Indication: RELAPSING-REMITTING MULTIPLE SCLEROSIS
     Route: 058
     Dates: start: 20071228
  2. REBIF [Suspect]
     Route: 058
     Dates: start: 20080101, end: 20100501
  3. PREDNISONE [Suspect]
     Route: 048
     Dates: start: 20071201, end: 20071201
  4. PREDNISONE [Suspect]
     Dates: start: 20080201, end: 20080201
  5. PREDNISONE [Suspect]
     Dates: start: 20080201, end: 20080201
  6. PREDNISONE [Suspect]
     Dates: start: 20080201, end: 20080201
  7. PREDNISONE [Suspect]
     Dates: start: 20080201, end: 20080201
  8. SOLU-MEDROL [Suspect]
     Dates: start: 20080201, end: 20080201

REACTIONS (5)
  - INJECTION SITE ERYTHEMA [None]
  - MULTIPLE SCLEROSIS RELAPSE [None]
  - OSTEONECROSIS [None]
  - PULMONARY EMBOLISM [None]
  - PYREXIA [None]
